FAERS Safety Report 23160634 (Version 5)
Quarter: 2024Q3

REPORT INFORMATION
  Report Type: Report from Study
  Country: US (occurrence: US)
  Receive Date: 20231108
  Receipt Date: 20240813
  Transmission Date: 20241017
  Serious: No
  Sender: ALEXION PHARMACEUTICALS
  Company Number: US-ALXN-A202308106

PATIENT
  Sex: Male

DRUGS (1)
  1. ULTOMIRIS [Suspect]
     Active Substance: RAVULIZUMAB-CWVZ
     Indication: Myasthenia gravis
     Dosage: UNK
     Route: 042

REACTIONS (13)
  - Dyspnoea exertional [Recovering/Resolving]
  - Pain in extremity [Not Recovered/Not Resolved]
  - Abnormal behaviour [Unknown]
  - Back pain [Unknown]
  - Arthralgia [Not Recovered/Not Resolved]
  - Myalgia [Unknown]
  - Peripheral swelling [Unknown]
  - Dyskinesia [Unknown]
  - Muscle spasms [Not Recovered/Not Resolved]
  - Carpal tunnel syndrome [Unknown]
  - Trigger finger [Unknown]
  - Nervous system disorder [Not Recovered/Not Resolved]
  - Procedural pain [Unknown]
